FAERS Safety Report 6071860-6 (Version None)
Quarter: 2009Q1

REPORT INFORMATION
  Report Type: 
  Country: None (occurrence: None)
  Receive Date: 20090205
  Receipt Date: 20090121
  Transmission Date: 20090719
  Serious: Yes (Other)
  Sender: FDA-Public Use
  Company Number: MC200900019

PATIENT
  Sex: 0

DRUGS (1)
  1. CLEVIPREX [Suspect]
     Indication: PROCEDURAL HYPERTENSION
     Dosage: 4-5 MG/HR, INTRAVENOUS
     Route: 042
     Dates: start: 20090121, end: 20090121

REACTIONS (2)
  - CONVULSION [None]
  - EMBOLIC STROKE [None]
